FAERS Safety Report 5673812-4 (Version None)
Quarter: 2008Q1

REPORT INFORMATION
  Report Type: 
  Country: None (occurrence: None)
  Receive Date: 20080319
  Receipt Date: 20080307
  Transmission Date: 20080703
  Serious: Yes (Death)
  Sender: FDA-Public Use
  Company Number: US-PFIZER INC-2008022795

PATIENT
  Sex: Male

DRUGS (4)
  1. XANAX [Suspect]
     Route: 048
  2. ZOLOFT [Suspect]
     Route: 048
  3. DURAGESIC-100 [Suspect]
     Dosage: TEXT:50 UG/HR
  4. METHADON HCL TAB [Suspect]
     Route: 048

REACTIONS (1)
  - MULTIPLE DRUG OVERDOSE ACCIDENTAL [None]
